FAERS Safety Report 9256995 (Version 2)
Quarter: 2013Q2

REPORT INFORMATION
  Report Type: Spontaneous
  Country: IN (occurrence: None)
  Receive Date: 20130423
  Receipt Date: 20130423
  Transmission Date: 20140414
  Serious: Yes (Other)
  Sender: FDA-Public Use
  Company Number: CC400176571

PATIENT
  Age: 59 Year
  Sex: Male

DRUGS (4)
  1. CEFTAZIDIME [Suspect]
     Indication: MENINGITIS TUBERCULOUS
  2. CEFTAZIDIME [Suspect]
     Indication: HYPERTENSION
  3. CEFTAZIDIME [Suspect]
  4. CEFTAZIDIME [Suspect]

REACTIONS (2)
  - Status epilepticus [None]
  - Blood creatinine increased [None]
